FAERS Safety Report 23484549 (Version 1)
Quarter: 2024Q1

REPORT INFORMATION
  Report Type: Spontaneous
  Country: US (occurrence: US)
  Receive Date: 20240206
  Receipt Date: 20240206
  Transmission Date: 20240410
  Serious: Yes (Other)
  Sender: FDA-Public Use
  Company Number: US-GSKCCFUS-Case-01926697_AE-107177

PATIENT

DRUGS (1)
  1. TRELEGY ELLIPTA [Suspect]
     Active Substance: FLUTICASONE FUROATE\UMECLIDINIUM BROMIDE\VILANTEROL TRIFENATATE
     Indication: Asthma
     Dosage: 100/62.5/25 MCG
     Route: 055
     Dates: end: 20240122

REACTIONS (9)
  - Choking [Recovered/Resolved]
  - Hypertension [Recovered/Resolved]
  - Oropharyngeal discomfort [Recovered/Resolved]
  - Cough [Recovered/Resolved]
  - Rhinorrhoea [Recovered/Resolved]
  - Inflammation [Recovered/Resolved]
  - Pharyngeal swelling [Recovered/Resolved]
  - Intentional product misuse [Recovered/Resolved]
  - Chest pain [Recovered/Resolved]
